FAERS Safety Report 23094093 (Version 18)
Quarter: 2025Q1

REPORT INFORMATION
  Report Type: Spontaneous
  Country: US (occurrence: US)
  Receive Date: 20231023
  Receipt Date: 20250306
  Transmission Date: 20250408
  Serious: No
  Sender: IPSEN BIOPHARMACEUTICALS, INC.
  Company Number: US-Ipsen Biopharmaceuticals, Inc.-2023-24137

PATIENT
  Age: 89 Year
  Sex: Female
  Weight: 52 kg

DRUGS (14)
  1. TAZVERIK [Suspect]
     Active Substance: TAZEMETOSTAT HYDROBROMIDE
     Indication: Follicular lymphoma stage III
     Dosage: 400 MG IN MORNING 200 MG IN EVENING
     Route: 048
     Dates: start: 20231010
  2. TAZVERIK [Suspect]
     Active Substance: TAZEMETOSTAT HYDROBROMIDE
     Indication: Breast cancer
     Route: 048
  3. TAZVERIK [Suspect]
     Active Substance: TAZEMETOSTAT HYDROBROMIDE
     Indication: Off label use
  4. AMLODIPINE BESYLATE [Concomitant]
     Active Substance: AMLODIPINE BESYLATE
     Dosage: 10
     Route: 048
  5. VITAMIN B COMPLEX [Concomitant]
     Active Substance: CYANOCOBALAMIN\DEXPANTHENOL\NIACINAMIDE\PYRIDOXINE HYDROCHLORIDE\RIBOFLAVIN 5^-PHOSPHATE SODIUM\THIA
     Route: 048
  6. FOLIC ACID [Concomitant]
     Active Substance: FOLIC ACID
     Route: 048
  7. LETROZOLE [Concomitant]
     Active Substance: LETROZOLE
     Route: 048
  8. TYLENOL EXTRA STRENGTH [Concomitant]
     Active Substance: ACETAMINOPHEN
     Indication: Pain
     Route: 048
  9. VITAMIN D3 [Concomitant]
     Active Substance: CHOLECALCIFEROL
     Route: 048
  10. CVS VITAMIN B12 [Concomitant]
     Route: 048
  11. VITAMIN D [Concomitant]
     Active Substance: VITAMIN D NOS
  12. MAGNESIUM [Concomitant]
     Active Substance: MAGNESIUM
  13. TRAMADOL [Concomitant]
     Active Substance: TRAMADOL
     Indication: Pain
  14. RITUXAN [Concomitant]
     Active Substance: RITUXIMAB
     Route: 042

REACTIONS (22)
  - Dizziness [Not Recovered/Not Resolved]
  - Asthenia [Not Recovered/Not Resolved]
  - Fall [Recovered/Resolved]
  - Decreased appetite [Recovering/Resolving]
  - Cholelithiasis [Not Recovered/Not Resolved]
  - Disease progression [Unknown]
  - Dizziness [Recovered/Resolved]
  - Asthenia [Recovering/Resolving]
  - Fatigue [Not Recovered/Not Resolved]
  - Nausea [Recovering/Resolving]
  - Nausea [Recovered/Resolved]
  - Pain [Not Recovered/Not Resolved]
  - Arthritis [Unknown]
  - Nervousness [Not Recovered/Not Resolved]
  - Anger [Not Recovered/Not Resolved]
  - Myalgia [Unknown]
  - Arthralgia [Unknown]
  - Abdominal pain [Not Recovered/Not Resolved]
  - Vomiting [Recovering/Resolving]
  - Dizziness [Recovering/Resolving]
  - Product dose omission issue [Unknown]
  - Off label use [Unknown]

NARRATIVE: CASE EVENT DATE: 20231010
